FAERS Safety Report 5736340-3 (Version None)
Quarter: 2008Q2

REPORT INFORMATION
  Report Type: 
  Country: None (occurrence: None)
  Receive Date: 20080513
  Receipt Date: 20080506
  Transmission Date: 20081010
  Serious: Yes (Hospitalization)
  Sender: FDA-Public Use
  Company Number: BR-ELI_LILLY_AND_COMPANY-BR200805001047

PATIENT
  Sex: Female
  Weight: 57 kg

DRUGS (3)
  1. HUMALOG [Suspect]
     Indication: DIABETES MELLITUS
     Dosage: 24 IU, EACH MORNING
     Route: 058
     Dates: start: 20020501
  2. HUMALOG [Suspect]
     Dosage: 18 IU, 3/D
     Route: 058
  3. LANTUS [Concomitant]
     Indication: DIABETES MELLITUS
     Dosage: 22 IU, DAILY (1/D)
     Route: 065

REACTIONS (5)
  - BACTERIA URINE IDENTIFIED [None]
  - DIZZINESS [None]
  - PNEUMONIA [None]
  - RETCHING [None]
  - VOMITING [None]
